FAERS Safety Report 5774117-3 (Version None)
Quarter: 2008Q2

REPORT INFORMATION
  Report Type: 
  Country: None (occurrence: None)
  Receive Date: 20080616
  Receipt Date: 20080610
  Transmission Date: 20081010
  Serious: Yes (Hospitalization)
  Sender: FDA-Public Use
  Company Number: FR-AVENTIS-200812195FR

PATIENT
  Age: 74 Year
  Sex: Male

DRUGS (1)
  1. FLAGYL [Suspect]
     Indication: PSEUDOMEMBRANOUS COLITIS
     Route: 048
     Dates: start: 20080415, end: 20080425

REACTIONS (1)
  - NEUTROPENIA [None]
